FAERS Safety Report 23855812 (Version 4)
Quarter: 2024Q3

REPORT INFORMATION
  Report Type: Report from Study
  Country: US (occurrence: US)
  Receive Date: 20240515
  Receipt Date: 20240813
  Transmission Date: 20241017
  Serious: Yes (Hospitalization, Other)
  Sender: ABBVIE
  Company Number: US-ABBVIE-5757375

PATIENT
  Age: 85 Year
  Sex: Male

DRUGS (4)
  1. VENCLEXTA [Suspect]
     Active Substance: VENETOCLAX
     Indication: Monoclonal gammopathy
     Route: 048
     Dates: start: 202202, end: 202202
  2. VENCLEXTA [Suspect]
     Active Substance: VENETOCLAX
     Indication: Monoclonal gammopathy
     Dosage: MISSED DOSES OF VENCLEXTA WHILE HOSPITALIZED
     Route: 048
     Dates: start: 20220228, end: 2024
  3. VENCLEXTA [Suspect]
     Active Substance: VENETOCLAX
     Indication: Monoclonal gammopathy
     Dosage: 2 TABLET PER DAY, REDUCED DOSE
     Route: 048
     Dates: start: 2024, end: 2024
  4. VENCLEXTA [Suspect]
     Active Substance: VENETOCLAX
     Indication: Monoclonal gammopathy
     Dosage: 4 TABLET PER DAY
     Route: 048
     Dates: start: 2024

REACTIONS (4)
  - Aortic valve disease [Recovering/Resolving]
  - Emotional disorder [Unknown]
  - Anxiety [Unknown]
  - Aortic valve replacement [Unknown]

NARRATIVE: CASE EVENT DATE: 20240701
